FAERS Safety Report 4860411-7 (Version None)
Quarter: 2005Q4

REPORT INFORMATION
  Report Type: 
  Country: None (occurrence: None)
  Receive Date: 20051215
  Receipt Date: 20051206
  Transmission Date: 20060501
  Serious: Yes (Hospitalization, Other)
  Sender: FDA-Public Use
  Company Number: 2005023435

PATIENT
  Sex: Female
  Weight: 106.5953 kg

DRUGS (6)
  1. NORVASC [Suspect]
     Indication: HYPERTENSION
     Dosage: SEE IMAGE
     Route: 048
     Dates: start: 20040101
  2. NORVASC [Suspect]
     Indication: HYPERTENSION
     Dosage: SEE IMAGE
     Route: 048
     Dates: start: 20040801
  3. HERBAL PRODUCTS (HERBAL EXTRACTS NOS) [Concomitant]
  4. VITAMINS (VITAMINS) [Concomitant]
  5. ZICAM (COUGH AND COLD PREPRARATIONS) [Concomitant]
  6. HERBAL DIURETICS (DIURETICS) [Concomitant]

REACTIONS (31)
  - BREAST CANCER STAGE I [None]
  - CATHETERISATION CARDIAC ABNORMAL [None]
  - COLON CANCER [None]
  - CONDITION AGGRAVATED [None]
  - CONFUSIONAL STATE [None]
  - DIZZINESS [None]
  - DRUG EFFECT DECREASED [None]
  - DRUG INTERACTION [None]
  - DYSPEPSIA [None]
  - ENDOMETRIOSIS [None]
  - EXERCISE LACK OF [None]
  - EYE INFLAMMATION [None]
  - FACIAL PAIN [None]
  - FLUID RETENTION [None]
  - GASTROINTESTINAL DISORDER [None]
  - GINGIVAL PAIN [None]
  - HYPERSENSITIVITY [None]
  - INFLAMMATION [None]
  - LOCAL SWELLING [None]
  - LYMPHADENOPATHY [None]
  - MUSCULOSKELETAL STIFFNESS [None]
  - OCULAR HYPERAEMIA [None]
  - OEDEMA PERIPHERAL [None]
  - PAIN IN JAW [None]
  - PHARMACEUTICAL PRODUCT COMPLAINT [None]
  - RADIATION INJURY [None]
  - SINUSITIS [None]
  - SKIN DISCOLOURATION [None]
  - SKIN REACTION [None]
  - UTERINE CANCER [None]
  - UTERINE ENLARGEMENT [None]
